FAERS Safety Report 13856418 (Version 1)
Quarter: 2017Q3

REPORT INFORMATION
  Report Type: Spontaneous
  Country: US (occurrence: US)
  Receive Date: 20170810
  Receipt Date: 20170810
  Transmission Date: 20171127
  Serious: No
  Sender: FDA-Public Use
  Company Number: US-009507513-1708USA004156

PATIENT
  Sex: Male

DRUGS (7)
  1. LIDOCAINE. [Concomitant]
     Active Substance: LIDOCAINE
  2. INTRON A [Suspect]
     Active Substance: INTERFERON ALFA-2B
     Indication: BLADDER CANCER
     Dosage: STRENGHT: 18MIU 3 ML MDV, INJECT 300,000 UNITS (5 UNITS) 3 TIMES A WEEK ON MONDAYS, WEDNESDAYS, FRYD
     Route: 023
     Dates: start: 20161101
  3. DESMOPRESSIN [Concomitant]
     Active Substance: DESMOPRESSIN
  4. LEVOFLOXACIN. [Concomitant]
     Active Substance: LEVOFLOXACIN
  5. ONDANSETRON [Concomitant]
     Active Substance: ONDANSETRON
  6. MORPHINE SULFATE. [Concomitant]
     Active Substance: MORPHINE SULFATE
     Dosage: CAPSULE 10 MG ER
  7. SULFAMETHOXAZOLE [Concomitant]
     Active Substance: SULFAMETHOXAZOLE

REACTIONS (1)
  - Hypogeusia [Not Recovered/Not Resolved]
